FAERS Safety Report 24450595 (Version 1)
Quarter: 2024Q4

REPORT INFORMATION
  Report Type: Spontaneous
  Country: PL (occurrence: PL)
  Receive Date: 20241017
  Receipt Date: 20241017
  Transmission Date: 20250114
  Serious: Yes (Other)
  Sender: UCB
  Company Number: PL-UCBSA-2024051739

PATIENT
  Age: 31 Year
  Sex: Female

DRUGS (4)
  1. CERTOLIZUMAB PEGOL [Suspect]
     Active Substance: CERTOLIZUMAB PEGOL
     Indication: Rheumatoid arthritis
     Dosage: UNK
  2. PREDNISONE [Suspect]
     Active Substance: PREDNISONE
     Indication: Rheumatoid arthritis
     Dosage: UNK
  3. PREDNISOLONE [Concomitant]
     Active Substance: PREDNISOLONE
     Indication: Glomerulonephritis
     Dosage: UNK
  4. MYCOPHENOLATE MOFETIL [Concomitant]
     Active Substance: MYCOPHENOLATE MOFETIL
     Indication: Glomerulonephritis
     Dosage: 1000 MILLIGRAM, 2X/DAY (BID)

REACTIONS (6)
  - Rheumatoid arthritis [Recovered/Resolved]
  - Henoch-Schonlein purpura [Recovered/Resolved]
  - Koebner phenomenon [Recovered/Resolved]
  - Skin lesion [Recovered/Resolved]
  - Maternal exposure during pregnancy [Unknown]
  - Maternal exposure before pregnancy [Unknown]
